FAERS Safety Report 6604925-8 (Version None)
Quarter: 2010Q1

REPORT INFORMATION
  Report Type: 
  Country: None (occurrence: None)
  Receive Date: 20100226
  Receipt Date: 20100216
  Transmission Date: 20100710
  Serious: Yes (Hospitalization)
  Sender: FDA-Public Use
  Company Number: ES-JNJFOC-20100207848

PATIENT
  Age: 33 Year
  Sex: Female

DRUGS (3)
  1. ITRACONAZOLE [Suspect]
     Indication: HISTOPLASMOSIS
     Route: 065
  2. EFAVIRENZ [Interacting]
     Indication: DRUG USE FOR UNKNOWN INDICATION
     Route: 065
  3. AMPHOTERICIN B [Concomitant]
     Indication: HISTOPLASMOSIS
     Route: 065

REACTIONS (4)
  - DRUG INTERACTION [None]
  - HISTOPLASMOSIS [None]
  - LYMPHADENITIS [None]
  - MENINGEAL DISORDER [None]
